FAERS Safety Report 20324947 (Version 1)
Quarter: 2022Q1

REPORT INFORMATION
  Report Type: Spontaneous
  Country: CN (occurrence: CN)
  Receive Date: 20220111
  Receipt Date: 20220111
  Transmission Date: 20220424
  Serious: Yes (Life-Threatening, Hospitalization)
  Sender: FDA-Public Use
  Company Number: CN-BAXTER-2022BAX000452

PATIENT
  Age: 48 Year
  Sex: Female
  Weight: 52 kg

DRUGS (10)
  1. CYCLOPHOSPHAMIDE [Suspect]
     Active Substance: CYCLOPHOSPHAMIDE
     Indication: Diffuse large B-cell lymphoma
     Dosage: CYCLOPHOSPHAMIDE 1.12G + 0.9% SODIUM CHLORIDE 500ML, ONCE
     Route: 041
     Dates: start: 20211214, end: 20211214
  2. CYCLOPHOSPHAMIDE [Suspect]
     Active Substance: CYCLOPHOSPHAMIDE
     Indication: Breast cancer stage II
  3. SODIUM CHLORIDE [Suspect]
     Active Substance: SODIUM CHLORIDE
     Indication: Medication dilution
     Dosage: CYCLOPHOSPHAMIDE 1.12 G + 0.9% SODIUM CHLORIDE 500 ML, ONCE
     Route: 041
     Dates: start: 20211214, end: 20211214
  4. SODIUM CHLORIDE [Suspect]
     Active Substance: SODIUM CHLORIDE
     Dosage: RITUXIMAB 100 MG + 0.9% SODIUM CHLORIDE 100ML, ONCE
     Route: 041
     Dates: start: 20211213, end: 20211213
  5. SODIUM CHLORIDE [Suspect]
     Active Substance: SODIUM CHLORIDE
     Dosage: RITUXIMAB 500 MG + 0.9% SODIUM CHLORIDE 500ML, ONCE
     Route: 041
     Dates: start: 20211213, end: 20211213
  6. DEXTROSE [Suspect]
     Active Substance: DEXTROSE
     Indication: Medication dilution
     Dosage: PIRARUBICIN HYDROCHLORIDE 74 MG + 5% GLUCOSE 250ML, ONCE
     Route: 041
     Dates: start: 20211213, end: 20211213
  7. PIRARUBICIN HYDROCHLORIDE [Suspect]
     Active Substance: PIRARUBICIN HYDROCHLORIDE
     Indication: Diffuse large B-cell lymphoma
     Dosage: PIRARUBICIN HYDROCHLORIDE 74 MG + 5% GLUCOSE INJECTION 250ML, ONCE
     Route: 041
     Dates: start: 20211213, end: 20211213
  8. PIRARUBICIN HYDROCHLORIDE [Suspect]
     Active Substance: PIRARUBICIN HYDROCHLORIDE
     Indication: Breast cancer stage II
  9. MABTHERA [Suspect]
     Active Substance: RITUXIMAB
     Indication: Diffuse large B-cell lymphoma
     Dosage: RITUXIMAB 100 MG + 0.9% SODIUM CHLORIDE 100ML, ONCE
     Route: 041
     Dates: start: 20211213, end: 20211213
  10. MABTHERA [Suspect]
     Active Substance: RITUXIMAB
     Indication: Breast cancer stage II
     Dosage: RITUXIMAB 500 MG + 0.9% SODIUM CHLORIDE 500ML, ONCE
     Route: 041
     Dates: start: 20211213, end: 20211213

REACTIONS (1)
  - Myelosuppression [Unknown]

NARRATIVE: CASE EVENT DATE: 20211220
